FAERS Safety Report 5336804-0 (Version None)
Quarter: 2007Q2

REPORT INFORMATION
  Report Type: 
  Country: None (occurrence: None)
  Receive Date: 20070524
  Receipt Date: 20070524
  Transmission Date: 20071010
  Serious: Yes (Hospitalization, Disabling)
  Sender: FDA-Public Use
  Company Number: None

PATIENT
  Sex: Female

DRUGS (1)
  1. PHOSPHOSODA FLAVOR NOT SPECIFIED [Suspect]
     Indication: COLONOSCOPY
     Dosage: ;X1;PO
     Route: 048
     Dates: start: 20040523, end: 20040524

REACTIONS (4)
  - DIALYSIS [None]
  - RENAL FAILURE [None]
  - RENAL INJURY [None]
  - RENAL TRANSPLANT [None]
